FAERS Safety Report 19598707 (Version 3)
Quarter: 2021Q3

REPORT INFORMATION
  Report Type: Spontaneous
  Country: AT (occurrence: AT)
  Receive Date: 20210722
  Receipt Date: 20210805
  Transmission Date: 20211014
  Serious: Yes (Death, Other)
  Sender: FDA-Public Use
  Company Number: AT-ELI_LILLY_AND_COMPANY-AT202107006609

PATIENT
  Sex: Male

DRUGS (26)
  1. PEMETREXED. [Suspect]
     Active Substance: PEMETREXED
     Dosage: UNK UNK, UNKNOWN
     Route: 065
     Dates: start: 201803
  2. LYRICA [Concomitant]
     Active Substance: PREGABALIN
     Indication: PRODUCT USED FOR UNKNOWN INDICATION
     Dosage: 75 MG, UNKNOWN
  3. VITAMIN B12 [Concomitant]
     Active Substance: CYANOCOBALAMIN
     Indication: PRODUCT USED FOR UNKNOWN INDICATION
     Dosage: UNK, UNKNOWN
     Dates: start: 20210616
  4. CISPLATIN. [Suspect]
     Active Substance: CISPLATIN
     Indication: PRODUCT USED FOR UNKNOWN INDICATION
     Dosage: UNK, UNKNOWN
     Route: 065
     Dates: start: 201803
  5. FOLSAN [Concomitant]
     Active Substance: FOLIC ACID
     Indication: PRODUCT USED FOR UNKNOWN INDICATION
     Dosage: 5 MG, WEEKLY (1/W)
  6. PEMETREXED. [Suspect]
     Active Substance: PEMETREXED
     Dosage: UNK UNK, UNKNOWN
     Route: 065
     Dates: start: 20180419, end: 20190118
  7. NOVALGIN [CAFFEINE;PARACETAMOL;PROPYPHENAZONE [Concomitant]
     Indication: PAIN
  8. PASPERTIN [METOCLOPRAMIDE;POLIDOCANOL] [Concomitant]
     Indication: NAUSEA
     Dosage: 10 MG, OTHER (UP TO 3X A DAY)
  9. OPTIDERM [DEXPANTHENOL;HYDROCORTISONE] [Concomitant]
     Indication: PRURITUS
     Dosage: UNK, UNKNOWN
  10. CARBOPLATIN. [Suspect]
     Active Substance: CARBOPLATIN
     Indication: PRODUCT USED FOR UNKNOWN INDICATION
     Dosage: UNK UNK, UNKNOWN
     Route: 065
     Dates: start: 20210623
  11. PANTOLOC [Concomitant]
     Active Substance: PANTOPRAZOLE SODIUM
     Indication: PRODUCT USED FOR UNKNOWN INDICATION
     Dosage: 40 MG, DAILY
  12. VITAMINS WITH MINERALS [Concomitant]
     Active Substance: MINERALS\VITAMINS
     Indication: PRODUCT USED FOR UNKNOWN INDICATION
     Dosage: UNK, BID
  13. PEMETREXED. [Suspect]
     Active Substance: PEMETREXED
     Dosage: UNK UNK, UNKNOWN
     Route: 065
     Dates: start: 20210623
  14. NEULASTA [Concomitant]
     Active Substance: PEGFILGRASTIM
     Indication: PRODUCT USED FOR UNKNOWN INDICATION
     Dosage: 6 MG, DAILY
     Route: 058
  15. MOLAXOLE [Concomitant]
     Active Substance: POLYETHYLENE GLYCOL 3350\POTASSIUM CHLORIDE\SODIUM BICARBONATE\SODIUM CHLORIDE
     Indication: CONSTIPATION
     Dosage: 100 DOSAGE FORM, DAILY
  16. TRITTICO [Concomitant]
     Active Substance: TRAZODONE HYDROCHLORIDE
     Indication: PRODUCT USED FOR UNKNOWN INDICATION
     Dosage: 75 MG, DAILY
  17. FORTECORTIN [DEXAMETHASONE] [Concomitant]
     Active Substance: DEXAMETHASONE
     Indication: PRODUCT USED FOR UNKNOWN INDICATION
     Dosage: 8 MG, DAILY
  18. PEMETREXED. [Suspect]
     Active Substance: PEMETREXED
     Indication: PRODUCT USED FOR UNKNOWN INDICATION
     Dosage: UNK UNK, UNKNOWN
     Route: 065
     Dates: start: 201803, end: 201901
  19. NIVOLUMAB [Concomitant]
     Active Substance: NIVOLUMAB
     Indication: PRODUCT USED FOR UNKNOWN INDICATION
     Dosage: UNK
     Route: 065
     Dates: start: 202105, end: 202105
  20. ZOFRAN [Concomitant]
     Active Substance: ONDANSETRON HYDROCHLORIDE
     Indication: NAUSEA
     Dosage: 8 MG, OTHER (UP TO 3X A DAY)
  21. NOVALGIN [CAFFEINE;PARACETAMOL;PROPYPHENAZONE [Concomitant]
     Indication: BODY TEMPERATURE INCREASED
     Dosage: UNK, OTHER (UP TO 3 X PER DAY 40 (DROP)
  22. TRANSTEC [Concomitant]
     Active Substance: BUPRENORPHINE
     Indication: PRODUCT USED FOR UNKNOWN INDICATION
     Dosage: 30 UG, OTHER (EVERY 4 DAYS)
     Route: 062
  23. TEMGESIC [Concomitant]
     Active Substance: BUPRENORPHINE HYDROCHLORIDE
     Indication: PAIN
     Dosage: 0.2 MG, OTHER (UP TO 4X PER DAY)
  24. XGEVA [Concomitant]
     Active Substance: DENOSUMAB
     Indication: PRODUCT USED FOR UNKNOWN INDICATION
     Dosage: 1 DOSAGE FORM, MONTHLY (1/M)
     Route: 058
  25. XYZAL [Concomitant]
     Active Substance: LEVOCETIRIZINE DIHYDROCHLORIDE
     Indication: PRURITUS
     Dosage: 3 DOSAGE FORM, DAILY
  26. PARACETAMOL [Concomitant]
     Active Substance: ACETAMINOPHEN
     Indication: BONE PAIN
     Dosage: 500 MG, OTHER (UP TO 3X A DAY)

REACTIONS (6)
  - Metastases to bone [Unknown]
  - Malignant neoplasm progression [Unknown]
  - Pneumonia [Fatal]
  - Lung adenocarcinoma [Unknown]
  - Malignant neoplasm of pleura [Unknown]
  - Metastases to central nervous system [Unknown]
